FAERS Safety Report 5363818-7 (Version None)
Quarter: 2007Q2

REPORT INFORMATION
  Report Type: 
  Country: None (occurrence: None)
  Receive Date: 20070620
  Receipt Date: 20070608
  Transmission Date: 20071010
  Serious: Yes (Death)
  Sender: FDA-Public Use
  Company Number: JP-SANOFI-SYNTHELABO-A01200704763

PATIENT
  Age: 62 Year
  Sex: Male
  Weight: 49 kg

DRUGS (20)
  1. PREDOPA [Concomitant]
     Indication: HYPOTENSION
     Route: 042
     Dates: start: 20070425, end: 20070427
  2. SUBVITAN [Concomitant]
     Indication: DRUG USE FOR UNKNOWN INDICATION
     Dosage: 1 DF
     Route: 065
     Dates: start: 20070424
  3. ATARAX [Suspect]
     Indication: ABDOMINAL PAIN
     Route: 042
     Dates: start: 20070424, end: 20070424
  4. ATARAX [Suspect]
     Indication: ILEUS
     Route: 042
     Dates: start: 20070424, end: 20070424
  5. BUSCOPAN [Suspect]
     Indication: ABDOMINAL PAIN
     Route: 042
     Dates: start: 20070424, end: 20070425
  6. BUSCOPAN [Suspect]
     Indication: ILEUS
     Route: 042
     Dates: start: 20070424, end: 20070425
  7. ISOTONIC SODIUM CHLORIDE [Concomitant]
     Indication: DRUG USE FOR UNKNOWN INDICATION
     Dosage: 120 ML
     Route: 065
     Dates: start: 20070424, end: 20070424
  8. ISOTONIC SODIUM CHLORIDE [Concomitant]
     Dosage: 1000 ML
     Route: 065
     Dates: start: 20070426, end: 20070426
  9. ISOTONIC SODIUM CHLORIDE [Concomitant]
     Dosage: 100 ML
     Route: 065
     Dates: start: 20070427
  10. OPYSTAN [Concomitant]
     Indication: DRUG USE FOR UNKNOWN INDICATION
     Dosage: 1 DF
     Route: 065
     Dates: start: 20070424
  11. VOLTAREN [Concomitant]
     Indication: ABDOMINAL PAIN
     Route: 054
     Dates: start: 20070424, end: 20070424
  12. VOLTAREN [Concomitant]
     Indication: ILEUS
     Route: 054
     Dates: start: 20070424, end: 20070424
  13. ASPARA K [Concomitant]
     Indication: HYPOKALAEMIA
     Route: 042
     Dates: start: 20070426, end: 20070426
  14. BFLUID [Concomitant]
     Indication: DEHYDRATION
     Route: 042
     Dates: start: 20070426, end: 20070427
  15. PENTAGIN [Suspect]
     Indication: ABDOMINAL PAIN
     Route: 042
     Dates: start: 20070424, end: 20070424
  16. PENTAGIN [Suspect]
     Indication: ILEUS
     Route: 042
     Dates: start: 20070424, end: 20070424
  17. PANSPORIN [Concomitant]
     Indication: ENTERITIS
     Route: 042
     Dates: start: 20070425, end: 20070427
  18. LACTEC [Concomitant]
     Indication: DEHYDRATION
     Route: 042
     Dates: start: 20070424, end: 20070427
  19. AMIGRAND [Concomitant]
     Indication: DEHYDRATION
     Route: 042
     Dates: start: 20070424, end: 20070427
  20. MYSLEE [Suspect]
     Indication: INSOMNIA
     Route: 048
     Dates: start: 20070426, end: 20070426

REACTIONS (4)
  - ABNORMAL BEHAVIOUR [None]
  - DELIRIUM [None]
  - FALL [None]
  - MUSCLE TWITCHING [None]
